APPROVED DRUG PRODUCT: METOPROLOL TARTRATE
Active Ingredient: METOPROLOL TARTRATE
Strength: 1MG/ML
Dosage Form/Route: INJECTABLE;INJECTION
Application: A091307 | Product #001
Applicant: LUITPOLD PHARMACEUTICALS INC
Approved: Dec 29, 2010 | RLD: No | RS: No | Type: DISCN